FAERS Safety Report 5017459-1 (Version None)
Quarter: 2006Q2

REPORT INFORMATION
  Report Type: 
  Country: None (occurrence: None)
  Receive Date: 20060601
  Receipt Date: 20060601
  Transmission Date: 20061013
  Serious: No
  Sender: FDA-Public Use
  Company Number: None

PATIENT
  Sex: Male
  Weight: 94.3 kg

DRUGS (2)
  1. REOPRO [Suspect]
     Dosage: 0.25 MCG BOLUS + 0.125 MCG/KG/MIN
     Route: 040
  2. PLAVIX [Suspect]
     Dosage: 75 MG PO DAILY
     Route: 048

REACTIONS (2)
  - INFUSION RELATED REACTION [None]
  - THROMBOCYTOPENIA [None]
